FAERS Safety Report 5410189-3 (Version None)
Quarter: 2007Q3

REPORT INFORMATION
  Report Type: 
  Country: None (occurrence: None)
  Receive Date: 20070713
  Receipt Date: 20070411
  Transmission Date: 20080115
  Serious: No
  Sender: FDA-Public Use
  Company Number: 2007SP001305

PATIENT
  Age: 23 Year
  Sex: Male

DRUGS (3)
  1. LUNESTA [Suspect]
     Indication: INSOMNIA
     Dosage: 3 MG;ORAL
     Route: 048
     Dates: start: 20070401, end: 20070406
  2. PERCOCET-5 [Suspect]
     Indication: BACK PAIN
     Dosage: 5 MG;ORAL
     Route: 048
  3. OXYCONTIN [Suspect]
     Indication: BACK PAIN
     Dosage: 20 MG;BID;ORAL
     Route: 048

REACTIONS (3)
  - ABNORMAL DREAMS [None]
  - PARASOMNIA [None]
  - THERMAL BURN [None]
